FAERS Safety Report 23673522 (Version 2)
Quarter: 2024Q2

REPORT INFORMATION
  Report Type: Report from Study
  Country: JP (occurrence: JP)
  Receive Date: 20240326
  Receipt Date: 20240402
  Transmission Date: 20240716
  Serious: Yes (Hospitalization)
  Sender: FDA-Public Use
  Company Number: JP-Eisai-202315465_LEQ_P_1

PATIENT
  Age: 81 Year
  Sex: Female
  Weight: 54.7 kg

DRUGS (3)
  1. LEQEMBI [Suspect]
     Active Substance: LECANEMAB-IRMB
     Indication: Cognitive disorder
     Dosage: FREQUENCY UNKNOWN
     Route: 041
     Dates: start: 20240304, end: 20240304
  2. RABEPRAZOLE SODIUM [Concomitant]
     Active Substance: RABEPRAZOLE SODIUM
     Indication: Product used for unknown indication
     Dosage: DOSE AND FREQUENCY UNKNOWN
  3. BROTIZOLAM [Concomitant]
     Active Substance: BROTIZOLAM
     Indication: Product used for unknown indication
     Dosage: DOSE AND FREQUENCY UNKNOWN

REACTIONS (3)
  - Loss of consciousness [Recovered/Resolved]
  - Multiple organ dysfunction syndrome [Unknown]
  - Paralysis [Unknown]

NARRATIVE: CASE EVENT DATE: 20240307
